FAERS Safety Report 16218332 (Version 1)
Quarter: 2019Q2

REPORT INFORMATION
  Report Type: Spontaneous
  Country: GB (occurrence: GB)
  Receive Date: 20190419
  Receipt Date: 20190419
  Transmission Date: 20190711
  Serious: Yes (Other)
  Sender: FDA-Public Use
  Company Number: GB-PFIZER INC-2019164275

PATIENT
  Age: 24 Year
  Sex: Male

DRUGS (2)
  1. VIAGRA [Suspect]
     Active Substance: SILDENAFIL CITRATE
     Indication: ERECTILE DYSFUNCTION
     Dosage: UNK
  2. COCAINE [Suspect]
     Active Substance: COCAINE
     Dosage: UNK

REACTIONS (9)
  - Hyperhidrosis [Unknown]
  - Palpitations [Unknown]
  - Painful erection [Unknown]
  - Feeling hot [Unknown]
  - Myocardial infarction [Unknown]
  - Drug abuse [Unknown]
  - Drug ineffective [Unknown]
  - Intentional overdose [Unknown]
  - Panic reaction [Unknown]
